FAERS Safety Report 8205611 (Version 2)
Quarter: 2014Q4

REPORT INFORMATION
  Report Type: Spontaneous
  Country: US (occurrence: US)
  Receive Date: 20111028
  Receipt Date: 20141022
  Transmission Date: 20150529
  Serious: Yes (Hospitalization, Other)
  Sender: FDA-Public Use
  Company Number: US-GLAXOSMITHKLINE-A0921886A

PATIENT
  Sex: Female

DRUGS (24)
  1. INSULIN [Concomitant]
     Active Substance: INSULIN NOS
  2. SEREVENT DISKUS [Suspect]
     Active Substance: SALMETEROL XINAFOATE
     Indication: ASTHMA
     Dosage: 1 PUFF(S), BID
     Route: 055
     Dates: start: 2004
  3. ALBUTEROL SULFATE. [Concomitant]
     Active Substance: ALBUTEROL SULFATE
  4. SPIRIVA [Concomitant]
     Active Substance: TIOTROPIUM BROMIDE MONOHYDRATE
  5. METOPROLOL [Concomitant]
     Active Substance: METOPROLOL
  6. QVAR [Concomitant]
     Active Substance: BECLOMETHASONE DIPROPIONATE
  7. FENOFIBRATE. [Concomitant]
     Active Substance: FENOFIBRATE
  8. SEREVENT DISKUS [Suspect]
     Active Substance: SALMETEROL XINAFOATE
     Indication: BRONCHITIS CHRONIC
  9. ADVAIR HFA [Suspect]
     Active Substance: FLUTICASONE PROPIONATE\SALMETEROL XINAFOATE
     Indication: PRODUCT USED FOR UNKNOWN INDICATION
     Dosage: UNK
  10. PHENERGAN [Concomitant]
     Active Substance: PROMETHAZINE HYDROCHLORIDE
  11. CLONAZEPAM. [Concomitant]
     Active Substance: CLONAZEPAM
  12. AZITHROMYCIN [Concomitant]
     Active Substance: AZITHROMYCIN ANHYDROUS
  13. VENTOLIN [Concomitant]
     Active Substance: ALBUTEROL SULFATE
  14. SEREVENT DISKUS [Suspect]
     Active Substance: SALMETEROL XINAFOATE
     Indication: CHRONIC OBSTRUCTIVE PULMONARY DISEASE
     Dosage: 1 PUFF(S), BID
     Route: 055
     Dates: start: 2001
  15. NEBULIZER (NAME UNKNOWN) [Concomitant]
  16. ZOFRAN [Concomitant]
     Active Substance: ONDANSETRON HYDROCHLORIDE
  17. SEREVENT DISKUS [Suspect]
     Active Substance: SALMETEROL XINAFOATE
     Indication: EMPHYSEMA
  18. ESCITALOPRAM [Concomitant]
     Active Substance: ESCITALOPRAM OXALATE
  19. FENTANYL. [Concomitant]
     Active Substance: FENTANYL
  20. OXYGEN. [Concomitant]
     Active Substance: OXYGEN
  21. COUMADIN [Concomitant]
     Active Substance: WARFARIN SODIUM
  22. MAGNESIUM [Concomitant]
     Active Substance: MAGNESIUM
  23. NORCO [Concomitant]
     Active Substance: ACETAMINOPHEN\HYDROCODONE BITARTRATE
  24. PREDNISONE. [Concomitant]
     Active Substance: PREDNISONE

REACTIONS (19)
  - Ileostomy [Recovered/Resolved]
  - Fistula [Not Recovered/Not Resolved]
  - Malaise [Unknown]
  - Joint range of motion decreased [Recovered/Resolved]
  - Diabetes mellitus inadequate control [Unknown]
  - Drain placement [Recovered/Resolved]
  - Dyspnoea [Unknown]
  - Product quality issue [Unknown]
  - Intestinal perforation [Recovered/Resolved]
  - Skin discolouration [Recovered/Resolved]
  - Feeling hot [Recovered/Resolved]
  - Intestinal operation [Recovered/Resolved]
  - Colostomy [Recovered/Resolved]
  - Nausea [Recovering/Resolving]
  - Muscle spasms [Recovered/Resolved]
  - Chest discomfort [Not Recovered/Not Resolved]
  - Anxiety [Recovering/Resolving]
  - Therapeutic procedure [Recovered/Resolved]
  - Bronchitis [Recovering/Resolving]

NARRATIVE: CASE EVENT DATE: 2009
